FAERS Safety Report 8127753-3 (Version None)
Quarter: 2011Q4

REPORT INFORMATION
  Report Type: 
  Country: None (occurrence: None)
  Receive Date: 20111227
  Receipt Date: 20110825
  Transmission Date: 20120403
  Serious: No
  Sender: FDA-Public Use
  Company Number: PHHY2011US64869

PATIENT
  Age: 44 Year
  Sex: Female
  Weight: 65.8 kg

DRUGS (6)
  1. PROVIGIL [Concomitant]
  2. GILENYA [Suspect]
     Indication: MULTIPLE SCLEROSIS
     Dosage: 0.5 MG, QD, ORAL
     Route: 048
     Dates: start: 20110407
  3. FAMPRIDINE (FAMPRIDINE) [Concomitant]
  4. ACTONEL [Concomitant]
  5. FESOTERODINE FUMARATE (FESOTERODINE FUMARATE) [Concomitant]
  6. MACROBID [Concomitant]

REACTIONS (3)
  - OEDEMA PERIPHERAL [None]
  - PHOTOSENSITIVITY REACTION [None]
  - RASH [None]
